FAERS Safety Report 26112691 (Version 1)
Quarter: 2025Q4

REPORT INFORMATION
  Report Type: Spontaneous
  Country: EU (occurrence: EU)
  Receive Date: 20251202
  Receipt Date: 20251202
  Transmission Date: 20260118
  Serious: Yes (Life-Threatening, Hospitalization)
  Sender: MYLAN
  Company Number: None

PATIENT
  Sex: Female

DRUGS (116)
  1. NOREPINEPHRINE [Suspect]
     Active Substance: NOREPINEPHRINE
     Indication: Procedural hypotension
     Dosage: 0.12 MICROGRAM, TOTAL
     Dates: start: 20250512, end: 20250512
  2. NOREPINEPHRINE [Suspect]
     Active Substance: NOREPINEPHRINE
     Dosage: 0.12 MICROGRAM, TOTAL
     Dates: start: 20250512, end: 20250512
  3. NOREPINEPHRINE [Suspect]
     Active Substance: NOREPINEPHRINE
     Dosage: 0.12 MICROGRAM, TOTAL
     Route: 064
     Dates: start: 20250512, end: 20250512
  4. NOREPINEPHRINE [Suspect]
     Active Substance: NOREPINEPHRINE
     Dosage: 0.12 MICROGRAM, TOTAL
     Route: 064
     Dates: start: 20250512, end: 20250512
  5. NOREPINEPHRINE [Suspect]
     Active Substance: NOREPINEPHRINE
     Dosage: 0.12 MICROGRAM, TOTAL
     Dates: start: 20250512, end: 20250512
  6. NOREPINEPHRINE [Suspect]
     Active Substance: NOREPINEPHRINE
     Dosage: 0.12 MICROGRAM, TOTAL
     Dates: start: 20250512, end: 20250512
  7. NOREPINEPHRINE [Suspect]
     Active Substance: NOREPINEPHRINE
     Dosage: 0.12 MICROGRAM, TOTAL
     Route: 064
     Dates: start: 20250512, end: 20250512
  8. NOREPINEPHRINE [Suspect]
     Active Substance: NOREPINEPHRINE
     Dosage: 0.12 MICROGRAM, TOTAL
     Route: 064
     Dates: start: 20250512, end: 20250512
  9. CEFAZOLIN SODIUM [Suspect]
     Active Substance: CEFAZOLIN SODIUM
     Indication: Antibiotic prophylaxis
     Dosage: 2 GRAM, TOTAL
     Dates: start: 20250512, end: 20250512
  10. CEFAZOLIN SODIUM [Suspect]
     Active Substance: CEFAZOLIN SODIUM
     Dosage: 2 GRAM, TOTAL
     Dates: start: 20250512, end: 20250512
  11. CEFAZOLIN SODIUM [Suspect]
     Active Substance: CEFAZOLIN SODIUM
     Dosage: 2 GRAM, TOTAL
     Route: 064
     Dates: start: 20250512, end: 20250512
  12. CEFAZOLIN SODIUM [Suspect]
     Active Substance: CEFAZOLIN SODIUM
     Dosage: 2 GRAM, TOTAL
     Route: 064
     Dates: start: 20250512, end: 20250512
  13. CEFAZOLIN SODIUM [Suspect]
     Active Substance: CEFAZOLIN SODIUM
     Dosage: 2 GRAM, TOTAL
     Dates: start: 20250512, end: 20250512
  14. CEFAZOLIN SODIUM [Suspect]
     Active Substance: CEFAZOLIN SODIUM
     Dosage: 2 GRAM, TOTAL
     Dates: start: 20250512, end: 20250512
  15. CEFAZOLIN SODIUM [Suspect]
     Active Substance: CEFAZOLIN SODIUM
     Dosage: 2 GRAM, TOTAL
     Route: 064
     Dates: start: 20250512, end: 20250512
  16. CEFAZOLIN SODIUM [Suspect]
     Active Substance: CEFAZOLIN SODIUM
     Dosage: 2 GRAM, TOTAL
     Route: 064
     Dates: start: 20250512, end: 20250512
  17. SUFENTANIL CITRATE [Suspect]
     Active Substance: SUFENTANIL CITRATE
     Indication: Nerve block
     Dosage: UNK
     Dates: start: 20250512, end: 20250512
  18. SUFENTANIL CITRATE [Suspect]
     Active Substance: SUFENTANIL CITRATE
     Dosage: UNK
     Dates: start: 20250512, end: 20250512
  19. SUFENTANIL CITRATE [Suspect]
     Active Substance: SUFENTANIL CITRATE
     Dosage: UNK
     Route: 064
     Dates: start: 20250512, end: 20250512
  20. SUFENTANIL CITRATE [Suspect]
     Active Substance: SUFENTANIL CITRATE
     Dosage: UNK
     Route: 064
     Dates: start: 20250512, end: 20250512
  21. SUFENTANIL CITRATE [Suspect]
     Active Substance: SUFENTANIL CITRATE
     Dosage: UNK
     Dates: start: 20250512, end: 20250512
  22. SUFENTANIL CITRATE [Suspect]
     Active Substance: SUFENTANIL CITRATE
     Dosage: UNK
     Dates: start: 20250512, end: 20250512
  23. SUFENTANIL CITRATE [Suspect]
     Active Substance: SUFENTANIL CITRATE
     Dosage: UNK
     Route: 064
     Dates: start: 20250512, end: 20250512
  24. SUFENTANIL CITRATE [Suspect]
     Active Substance: SUFENTANIL CITRATE
     Dosage: UNK
     Route: 064
     Dates: start: 20250512, end: 20250512
  25. HYDROXYZINE [Suspect]
     Active Substance: HYDROXYZINE HYDROCHLORIDE
     Indication: Product used for unknown indication
     Dosage: 50 MILLIGRAM, QD
     Dates: start: 20240915, end: 20250512
  26. HYDROXYZINE [Suspect]
     Active Substance: HYDROXYZINE HYDROCHLORIDE
     Dosage: 50 MILLIGRAM, QD
     Dates: start: 20240915, end: 20250512
  27. HYDROXYZINE [Suspect]
     Active Substance: HYDROXYZINE HYDROCHLORIDE
     Dosage: 50 MILLIGRAM, QD
     Route: 064
     Dates: start: 20240915, end: 20250512
  28. HYDROXYZINE [Suspect]
     Active Substance: HYDROXYZINE HYDROCHLORIDE
     Dosage: 50 MILLIGRAM, QD
     Route: 064
     Dates: start: 20240915, end: 20250512
  29. HYDROXYZINE [Suspect]
     Active Substance: HYDROXYZINE HYDROCHLORIDE
     Dosage: 50 MILLIGRAM, QD
     Dates: start: 20240915, end: 20250512
  30. HYDROXYZINE [Suspect]
     Active Substance: HYDROXYZINE HYDROCHLORIDE
     Dosage: 50 MILLIGRAM, QD
     Dates: start: 20240915, end: 20250512
  31. HYDROXYZINE [Suspect]
     Active Substance: HYDROXYZINE HYDROCHLORIDE
     Dosage: 50 MILLIGRAM, QD
     Route: 064
     Dates: start: 20240915, end: 20250512
  32. HYDROXYZINE [Suspect]
     Active Substance: HYDROXYZINE HYDROCHLORIDE
     Dosage: 50 MILLIGRAM, QD
     Route: 064
     Dates: start: 20240915, end: 20250512
  33. KETOPROFEN [Suspect]
     Active Substance: KETOPROFEN
     Indication: Product used for unknown indication
     Dosage: UNK
  34. KETOPROFEN [Suspect]
     Active Substance: KETOPROFEN
     Dosage: UNK
  35. KETOPROFEN [Suspect]
     Active Substance: KETOPROFEN
     Dosage: UNK
     Route: 064
  36. KETOPROFEN [Suspect]
     Active Substance: KETOPROFEN
     Dosage: UNK
     Route: 064
  37. KETOPROFEN [Suspect]
     Active Substance: KETOPROFEN
     Dosage: UNK
  38. KETOPROFEN [Suspect]
     Active Substance: KETOPROFEN
     Dosage: UNK
  39. KETOPROFEN [Suspect]
     Active Substance: KETOPROFEN
     Dosage: UNK
     Route: 064
  40. KETOPROFEN [Suspect]
     Active Substance: KETOPROFEN
     Dosage: UNK
     Route: 064
  41. DIAZEPAM [Suspect]
     Active Substance: DIAZEPAM
     Indication: Prophylaxis against alcoholic withdrawal syndrome
     Dosage: 30 MILLIGRAM, QD
     Dates: start: 20240915, end: 20250512
  42. DIAZEPAM [Suspect]
     Active Substance: DIAZEPAM
     Dosage: 30 MILLIGRAM, QD
     Dates: start: 20240915, end: 20250512
  43. DIAZEPAM [Suspect]
     Active Substance: DIAZEPAM
     Dosage: 30 MILLIGRAM, QD
     Route: 064
     Dates: start: 20240915, end: 20250512
  44. DIAZEPAM [Suspect]
     Active Substance: DIAZEPAM
     Dosage: 30 MILLIGRAM, QD
     Route: 064
     Dates: start: 20240915, end: 20250512
  45. DIAZEPAM [Suspect]
     Active Substance: DIAZEPAM
     Dosage: 30 MILLIGRAM, QD
     Dates: start: 20240915, end: 20250512
  46. DIAZEPAM [Suspect]
     Active Substance: DIAZEPAM
     Dosage: 30 MILLIGRAM, QD
     Dates: start: 20240915, end: 20250512
  47. DIAZEPAM [Suspect]
     Active Substance: DIAZEPAM
     Dosage: 30 MILLIGRAM, QD
     Route: 064
     Dates: start: 20240915, end: 20250512
  48. DIAZEPAM [Suspect]
     Active Substance: DIAZEPAM
     Dosage: 30 MILLIGRAM, QD
     Route: 064
     Dates: start: 20240915, end: 20250512
  49. PANTOPRAZOLE SODIUM [Suspect]
     Active Substance: PANTOPRAZOLE SODIUM
     Indication: Gastrooesophageal reflux disease
     Dosage: 40 MILLIGRAM, QD
     Dates: start: 20250510, end: 20250512
  50. PANTOPRAZOLE SODIUM [Suspect]
     Active Substance: PANTOPRAZOLE SODIUM
     Dosage: 40 MILLIGRAM, QD
     Dates: start: 20250510, end: 20250512
  51. PANTOPRAZOLE SODIUM [Suspect]
     Active Substance: PANTOPRAZOLE SODIUM
     Dosage: 40 MILLIGRAM, QD
     Route: 064
     Dates: start: 20250510, end: 20250512
  52. PANTOPRAZOLE SODIUM [Suspect]
     Active Substance: PANTOPRAZOLE SODIUM
     Dosage: 40 MILLIGRAM, QD
     Route: 064
     Dates: start: 20250510, end: 20250512
  53. PANTOPRAZOLE SODIUM [Suspect]
     Active Substance: PANTOPRAZOLE SODIUM
     Dosage: 40 MILLIGRAM, QD
     Dates: start: 20250510, end: 20250512
  54. PANTOPRAZOLE SODIUM [Suspect]
     Active Substance: PANTOPRAZOLE SODIUM
     Dosage: 40 MILLIGRAM, QD
     Dates: start: 20250510, end: 20250512
  55. PANTOPRAZOLE SODIUM [Suspect]
     Active Substance: PANTOPRAZOLE SODIUM
     Dosage: 40 MILLIGRAM, QD
     Route: 064
     Dates: start: 20250510, end: 20250512
  56. PANTOPRAZOLE SODIUM [Suspect]
     Active Substance: PANTOPRAZOLE SODIUM
     Dosage: 40 MILLIGRAM, QD
     Route: 064
     Dates: start: 20250510, end: 20250512
  57. ONDANSETRON [Suspect]
     Active Substance: ONDANSETRON
     Indication: Nausea
     Dosage: 4 MILLIGRAM, TOTAL
     Dates: start: 20250512, end: 20250512
  58. ONDANSETRON [Suspect]
     Active Substance: ONDANSETRON
     Dosage: 4 MILLIGRAM, TOTAL
     Dates: start: 20250512, end: 20250512
  59. ONDANSETRON [Suspect]
     Active Substance: ONDANSETRON
     Dosage: 4 MILLIGRAM, TOTAL
     Route: 064
     Dates: start: 20250512, end: 20250512
  60. ONDANSETRON [Suspect]
     Active Substance: ONDANSETRON
     Dosage: 4 MILLIGRAM, TOTAL
     Route: 064
     Dates: start: 20250512, end: 20250512
  61. ONDANSETRON [Suspect]
     Active Substance: ONDANSETRON
     Dosage: 4 MILLIGRAM, TOTAL
     Dates: start: 20250512, end: 20250512
  62. ONDANSETRON [Suspect]
     Active Substance: ONDANSETRON
     Dosage: 4 MILLIGRAM, TOTAL
     Dates: start: 20250512, end: 20250512
  63. ONDANSETRON [Suspect]
     Active Substance: ONDANSETRON
     Dosage: 4 MILLIGRAM, TOTAL
     Route: 064
     Dates: start: 20250512, end: 20250512
  64. ONDANSETRON [Suspect]
     Active Substance: ONDANSETRON
     Dosage: 4 MILLIGRAM, TOTAL
     Route: 064
     Dates: start: 20250512, end: 20250512
  65. EPINEPHRINE\LIDOCAINE [Suspect]
     Active Substance: EPINEPHRINE\LIDOCAINE
     Indication: Nerve block
     Dosage: 4 MILLILITER, TOTAL
     Dates: start: 20250512, end: 20250512
  66. EPINEPHRINE\LIDOCAINE [Suspect]
     Active Substance: EPINEPHRINE\LIDOCAINE
     Dosage: 4 MILLILITER, TOTAL
     Dates: start: 20250512, end: 20250512
  67. EPINEPHRINE\LIDOCAINE [Suspect]
     Active Substance: EPINEPHRINE\LIDOCAINE
     Dosage: 4 MILLILITER, TOTAL
     Route: 064
     Dates: start: 20250512, end: 20250512
  68. EPINEPHRINE\LIDOCAINE [Suspect]
     Active Substance: EPINEPHRINE\LIDOCAINE
     Dosage: 4 MILLILITER, TOTAL
     Route: 064
     Dates: start: 20250512, end: 20250512
  69. EPINEPHRINE\LIDOCAINE [Suspect]
     Active Substance: EPINEPHRINE\LIDOCAINE
     Dosage: 4 MILLILITER, TOTAL
     Dates: start: 20250512, end: 20250512
  70. EPINEPHRINE\LIDOCAINE [Suspect]
     Active Substance: EPINEPHRINE\LIDOCAINE
     Dosage: 4 MILLILITER, TOTAL
     Dates: start: 20250512, end: 20250512
  71. EPINEPHRINE\LIDOCAINE [Suspect]
     Active Substance: EPINEPHRINE\LIDOCAINE
     Dosage: 4 MILLILITER, TOTAL
     Route: 064
     Dates: start: 20250512, end: 20250512
  72. EPINEPHRINE\LIDOCAINE [Suspect]
     Active Substance: EPINEPHRINE\LIDOCAINE
     Dosage: 4 MILLILITER, TOTAL
     Route: 064
     Dates: start: 20250512, end: 20250512
  73. KETAMINE [Suspect]
     Active Substance: KETAMINE
     Indication: Product used for unknown indication
     Dosage: 3 GRAM, QW
     Dates: start: 20240915, end: 20250512
  74. KETAMINE [Suspect]
     Active Substance: KETAMINE
     Dosage: 3 GRAM, QW
     Dates: start: 20240915, end: 20250512
  75. KETAMINE [Suspect]
     Active Substance: KETAMINE
     Dosage: 3 GRAM, QW
     Route: 064
     Dates: start: 20240915, end: 20250512
  76. KETAMINE [Suspect]
     Active Substance: KETAMINE
     Dosage: 3 GRAM, QW
     Route: 064
     Dates: start: 20240915, end: 20250512
  77. KETAMINE [Suspect]
     Active Substance: KETAMINE
     Dosage: 3 GRAM, QW
     Dates: start: 20240915, end: 20250512
  78. KETAMINE [Suspect]
     Active Substance: KETAMINE
     Dosage: 3 GRAM, QW
     Dates: start: 20240915, end: 20250512
  79. KETAMINE [Suspect]
     Active Substance: KETAMINE
     Dosage: 3 GRAM, QW
     Route: 064
     Dates: start: 20240915, end: 20250512
  80. KETAMINE [Suspect]
     Active Substance: KETAMINE
     Dosage: 3 GRAM, QW
     Route: 064
     Dates: start: 20240915, end: 20250512
  81. LEVOBUPIVACAINE HYDROCHLORIDE [Suspect]
     Active Substance: LEVOBUPIVACAINE HYDROCHLORIDE
     Indication: Nerve block
     Dosage: UNK
     Dates: start: 20250512, end: 20250512
  82. LEVOBUPIVACAINE HYDROCHLORIDE [Suspect]
     Active Substance: LEVOBUPIVACAINE HYDROCHLORIDE
     Dosage: UNK
     Dates: start: 20250512, end: 20250512
  83. LEVOBUPIVACAINE HYDROCHLORIDE [Suspect]
     Active Substance: LEVOBUPIVACAINE HYDROCHLORIDE
     Dosage: UNK
     Route: 064
     Dates: start: 20250512, end: 20250512
  84. LEVOBUPIVACAINE HYDROCHLORIDE [Suspect]
     Active Substance: LEVOBUPIVACAINE HYDROCHLORIDE
     Dosage: UNK
     Route: 064
     Dates: start: 20250512, end: 20250512
  85. LEVOBUPIVACAINE HYDROCHLORIDE [Suspect]
     Active Substance: LEVOBUPIVACAINE HYDROCHLORIDE
     Dosage: UNK
     Dates: start: 20250512, end: 20250512
  86. LEVOBUPIVACAINE HYDROCHLORIDE [Suspect]
     Active Substance: LEVOBUPIVACAINE HYDROCHLORIDE
     Dosage: UNK
     Dates: start: 20250512, end: 20250512
  87. LEVOBUPIVACAINE HYDROCHLORIDE [Suspect]
     Active Substance: LEVOBUPIVACAINE HYDROCHLORIDE
     Dosage: UNK
     Route: 064
     Dates: start: 20250512, end: 20250512
  88. LEVOBUPIVACAINE HYDROCHLORIDE [Suspect]
     Active Substance: LEVOBUPIVACAINE HYDROCHLORIDE
     Dosage: UNK
     Route: 064
     Dates: start: 20250512, end: 20250512
  89. OXYTOCIN [Suspect]
     Active Substance: OXYTOCIN
     Indication: Labour induction
     Dosage: UNK
     Dates: start: 20250512, end: 20250512
  90. OXYTOCIN [Suspect]
     Active Substance: OXYTOCIN
     Dosage: UNK
     Dates: start: 20250512, end: 20250512
  91. OXYTOCIN [Suspect]
     Active Substance: OXYTOCIN
     Dosage: UNK
     Route: 064
     Dates: start: 20250512, end: 20250512
  92. OXYTOCIN [Suspect]
     Active Substance: OXYTOCIN
     Dosage: UNK
     Route: 064
     Dates: start: 20250512, end: 20250512
  93. OXYTOCIN [Suspect]
     Active Substance: OXYTOCIN
     Dosage: UNK
     Dates: start: 20250512, end: 20250512
  94. OXYTOCIN [Suspect]
     Active Substance: OXYTOCIN
     Dosage: UNK
     Dates: start: 20250512, end: 20250512
  95. OXYTOCIN [Suspect]
     Active Substance: OXYTOCIN
     Dosage: UNK
     Route: 064
     Dates: start: 20250512, end: 20250512
  96. OXYTOCIN [Suspect]
     Active Substance: OXYTOCIN
     Dosage: UNK
     Route: 064
     Dates: start: 20250512, end: 20250512
  97. AMOXICILLIN [Suspect]
     Active Substance: AMOXICILLIN
     Indication: Antibiotic prophylaxis
     Dosage: UNK
     Dates: start: 20250512, end: 20250512
  98. AMOXICILLIN [Suspect]
     Active Substance: AMOXICILLIN
     Dosage: UNK
     Dates: start: 20250512, end: 20250512
  99. AMOXICILLIN [Suspect]
     Active Substance: AMOXICILLIN
     Dosage: UNK
     Route: 064
     Dates: start: 20250512, end: 20250512
  100. AMOXICILLIN [Suspect]
     Active Substance: AMOXICILLIN
     Dosage: UNK
     Route: 064
     Dates: start: 20250512, end: 20250512
  101. AMOXICILLIN [Suspect]
     Active Substance: AMOXICILLIN
     Dosage: UNK
     Dates: start: 20250512, end: 20250512
  102. AMOXICILLIN [Suspect]
     Active Substance: AMOXICILLIN
     Dosage: UNK
     Dates: start: 20250512, end: 20250512
  103. AMOXICILLIN [Suspect]
     Active Substance: AMOXICILLIN
     Dosage: UNK
     Route: 064
     Dates: start: 20250512, end: 20250512
  104. AMOXICILLIN [Suspect]
     Active Substance: AMOXICILLIN
     Dosage: UNK
     Route: 064
     Dates: start: 20250512, end: 20250512
  105. BETAMETHASONE [Concomitant]
     Active Substance: BETAMETHASONE
     Dosage: UNK
  106. BETAMETHASONE [Concomitant]
     Active Substance: BETAMETHASONE
     Dosage: UNK
     Route: 065
  107. BETAMETHASONE [Concomitant]
     Active Substance: BETAMETHASONE
     Dosage: UNK
     Route: 065
  108. BETAMETHASONE [Concomitant]
     Active Substance: BETAMETHASONE
     Dosage: UNK
  109. INSULIN NOS [Concomitant]
     Active Substance: INSULIN NOS
     Dosage: UNK
  110. INSULIN NOS [Concomitant]
     Active Substance: INSULIN NOS
     Dosage: UNK
     Route: 065
  111. INSULIN NOS [Concomitant]
     Active Substance: INSULIN NOS
     Dosage: UNK
     Route: 065
  112. INSULIN NOS [Concomitant]
     Active Substance: INSULIN NOS
     Dosage: UNK
  113. ACETAMINOPHEN [Concomitant]
     Active Substance: ACETAMINOPHEN
     Dosage: UNK
  114. ACETAMINOPHEN [Concomitant]
     Active Substance: ACETAMINOPHEN
     Dosage: UNK
     Route: 065
  115. ACETAMINOPHEN [Concomitant]
     Active Substance: ACETAMINOPHEN
     Dosage: UNK
     Route: 065
  116. ACETAMINOPHEN [Concomitant]
     Active Substance: ACETAMINOPHEN
     Dosage: UNK

REACTIONS (6)
  - Acute respiratory distress syndrome [Recovered/Resolved]
  - Infantile apnoea [Recovered/Resolved]
  - Hypotonia [Recovered/Resolved]
  - Poor sucking reflex [Recovered/Resolved]
  - Foetal exposure during pregnancy [Recovered/Resolved]
  - Foetal exposure during delivery [Recovered/Resolved]

NARRATIVE: CASE EVENT DATE: 20240915
